FAERS Safety Report 7579202-1 (Version None)
Quarter: 2011Q2

REPORT INFORMATION
  Report Type: 
  Country: None (occurrence: None)
  Receive Date: 20110628
  Receipt Date: 20110616
  Transmission Date: 20111010
  Serious: Yes (Other)
  Sender: FDA-Public Use
  Company Number: US-BAYER-2011-021691

PATIENT
  Age: 73 Year
  Sex: Female
  Weight: 85.714 kg

DRUGS (5)
  1. OXYCODONE HCL [Concomitant]
  2. CLINDAMYCIN [Concomitant]
  3. BACTRIN [Concomitant]
  4. AVELOX [Suspect]
     Indication: BRONCHITIS
     Dosage: 400 MG, ONCE
     Route: 048
     Dates: start: 20110307, end: 20110308
  5. PENICILLIN [Concomitant]

REACTIONS (4)
  - PRURITUS [None]
  - ANAPHYLACTIC SHOCK [None]
  - RASH [None]
  - DYSPNOEA [None]
